FAERS Safety Report 5827966-7 (Version None)
Quarter: 2008Q3

REPORT INFORMATION
  Report Type: 
  Country: None (occurrence: None)
  Receive Date: 20080730
  Receipt Date: 20080721
  Transmission Date: 20090109
  Serious: Yes (Other)
  Sender: FDA-Public Use
  Company Number: US-PFIZER INC-2008061071

PATIENT
  Sex: Female
  Weight: 79.09 kg

DRUGS (4)
  1. CELEBREX [Suspect]
     Indication: ARTHRITIS
  2. PIROXICAM [Suspect]
     Indication: ARTHRITIS
     Dosage: TEXT:20MG
  3. NAPROXEN [Suspect]
     Indication: ARTHRITIS
  4. DEMEROL [Suspect]

REACTIONS (3)
  - APPARENT DEATH [None]
  - DRUG HYPERSENSITIVITY [None]
  - KNEE ARTHROPLASTY [None]
